FAERS Safety Report 10017839 (Version 1)
Quarter: 2014Q1

REPORT INFORMATION
  Report Type: Spontaneous
  Country: US (occurrence: None)
  Receive Date: 20140313
  Receipt Date: 20140313
  Transmission Date: 20141002
  Serious: Yes (Other)
  Sender: FDA-Public Use
  Company Number: None

PATIENT
  Age: 55 Year
  Sex: Female
  Weight: 61.69 kg

DRUGS (2)
  1. MUPIROCIN [Suspect]
     Indication: RASH
     Dosage: 2 TUBES TWICE DAILY
     Route: 061
     Dates: start: 20140206, end: 20140217
  2. CLOBETASOL PROPIONATE CREAM [Concomitant]

REACTIONS (2)
  - Rash [None]
  - Burns third degree [None]
